FAERS Safety Report 25590001 (Version 1)
Quarter: 2025Q3

REPORT INFORMATION
  Report Type: Spontaneous
  Country: EU (occurrence: EU)
  Receive Date: 20250722
  Receipt Date: 20250722
  Transmission Date: 20251021
  Serious: Yes (Hospitalization, Other)
  Sender: NOVO NORDISK
  Company Number: EU-NOVOPROD-1478832

PATIENT
  Age: 57 Year
  Sex: Male

DRUGS (1)
  1. WEGOVY [Suspect]
     Active Substance: SEMAGLUTIDE
     Indication: Obesity
     Dosage: 2.4 MG, QW
     Route: 058
     Dates: start: 202405, end: 20250522

REACTIONS (2)
  - Pulmonary embolism [Not Recovered/Not Resolved]
  - Myocardial strain imaging abnormal [Not Recovered/Not Resolved]

NARRATIVE: CASE EVENT DATE: 20250520
